FAERS Safety Report 9337607 (Version 2)
Quarter: 2013Q3

REPORT INFORMATION
  Report Type: Spontaneous
  Country: ZA (occurrence: ZA)
  Receive Date: 20130607
  Receipt Date: 20130904
  Transmission Date: 20140515
  Serious: Yes (Hospitalization)
  Sender: FDA-Public Use
  Company Number: ZA-ABBOTT-12P-143-0938974-00

PATIENT
  Age: 65 Year
  Sex: Female

DRUGS (8)
  1. HUMIRA 40 MG/ 0.8 ML PRE-FILLED SYRINGE [Suspect]
     Indication: RHEUMATOID ARTHRITIS
     Route: 058
     Dates: start: 201203
  2. HUMIRA [Suspect]
     Indication: RHEUMATOID ARTHRITIS
     Route: 058
  3. HUMIRA [Suspect]
     Dates: end: 201305
  4. HUMIRA [Suspect]
     Dates: start: 20130603
  5. UNSPECIFIED [Suspect]
     Indication: NODULE
  6. TRAMACET [Concomitant]
     Indication: PRODUCT USED FOR UNKNOWN INDICATION
  7. SALAZOPYRINE [Concomitant]
     Indication: PRODUCT USED FOR UNKNOWN INDICATION
  8. PLASMOQUINE [Concomitant]
     Indication: PRODUCT USED FOR UNKNOWN INDICATION

REACTIONS (12)
  - Rheumatoid nodule [Recovering/Resolving]
  - Pain in extremity [Not Recovered/Not Resolved]
  - Back injury [Unknown]
  - Fall [Unknown]
  - Rash [Not Recovered/Not Resolved]
  - Herpes zoster [Not Recovered/Not Resolved]
  - Stress [Not Recovered/Not Resolved]
  - Device malfunction [Recovered/Resolved]
  - Arthralgia [Unknown]
  - Blood uric acid increased [Unknown]
  - Gout [Unknown]
  - Medication error [Unknown]
